FAERS Safety Report 10412692 (Version 3)
Quarter: 2014Q3

REPORT INFORMATION
  Report Type: Spontaneous
  Country: GB (occurrence: None)
  Receive Date: 20140825
  Receipt Date: 20140922
  Transmission Date: 20150326
  Serious: Yes (Death, Other)
  Sender: FDA-Public Use
  Company Number: 2014226457

PATIENT
  Age: 83 Year
  Sex: Female
  Weight: 85 kg

DRUGS (15)
  1. DALTEPARIN SODIUM (DALTEPARIN SODIUM) UNKNOWN [Suspect]
     Active Substance: DALTEPARIN SODIUM
     Indication: ACUTE CORONARY SYNDROME
     Route: 058
     Dates: start: 20140115
  2. CLOPIDOGREL [Suspect]
     Active Substance: CLOPIDOGREL BISULFATE
     Indication: ACUTE CORONARY SYNDROME
     Route: 048
     Dates: start: 2012
  3. DIAZEPAM (DIAZEPAM) [Concomitant]
     Active Substance: DIAZEPAM
  4. GAVISCON (CALCIUM CARBONATE, ALUMINIUM HYDROXIDE MIXTURE, MAGNESIUM TRISILICATE, SODIUM HYDROGEN CARBONATE, SODIUM ALGINATE, ALUMINIUM HYDROXIDE GEL, ALGINIC ACID, SODIUM BICARBONATE) [Concomitant]
  5. LOPERAMIDE (LOPERAMIDE) [Concomitant]
     Active Substance: LOPERAMIDE
  6. NIFEDIPINE (NIFEDIPINE) [Concomitant]
  7. OMEPRAZOLE (OMEPRAZOLE) [Concomitant]
     Active Substance: OMEPRAZOLE
  8. DICYCLOVERINE (DICYCLOVERINE) [Concomitant]
  9. CEFRADINE (CEFRADINE) [Concomitant]
  10. CETIRIZINE (CETIRIZINE) [Concomitant]
     Active Substance: CETIRIZINE HYDROCHLORIDE
  11. PHENINDIONE (PHENINDIONE) [Concomitant]
  12. SIMVASTATIN (SIMVASTATIN) [Concomitant]
     Active Substance: SIMVASTATIN
  13. SOTALOL (SOTALOL) [Concomitant]
     Active Substance: SOTALOL
  14. MIRTAZAPINE (MIRTAZAPINE) [Concomitant]
     Active Substance: MIRTAZAPINE
  15. GTN (GLYCERYL TRINITRATE) [Concomitant]

REACTIONS (12)
  - Echocardiogram abnormal [None]
  - Hypotension [None]
  - Malaise [None]
  - Unresponsive to stimuli [None]
  - Death [None]
  - Documented hypersensitivity to administered drug [None]
  - Circulatory collapse [None]
  - Atrial fibrillation [None]
  - Rash generalised [None]
  - Burning sensation [None]
  - Anxiety [None]
  - Tachycardia [None]

NARRATIVE: CASE EVENT DATE: 20140115
